FAERS Safety Report 23167132 (Version 1)
Quarter: 2023Q4

REPORT INFORMATION
  Report Type: Spontaneous
  Country: US (occurrence: US)
  Receive Date: 20231109
  Receipt Date: 20231109
  Transmission Date: 20240110
  Serious: Yes (Hospitalization)
  Sender: FDA-Public Use
  Company Number: US-SA-SAC20231101000359

PATIENT

DRUGS (1)
  1. ALDURAZYME [Suspect]
     Active Substance: LARONIDASE
     Indication: Product used for unknown indication
     Dosage: 43.5 MG, QW
     Route: 041
     Dates: start: 2023

REACTIONS (1)
  - Scoliosis [Recovering/Resolving]

NARRATIVE: CASE EVENT DATE: 20230101
